FAERS Safety Report 16644254 (Version 3)
Quarter: 2019Q3

REPORT INFORMATION
  Report Type: Spontaneous
  Country: US (occurrence: US)
  Receive Date: 20190729
  Receipt Date: 20190905
  Transmission Date: 20191004
  Serious: Yes (Other)
  Sender: FDA-Public Use
  Company Number: US-JNJFOC-20190733070

PATIENT
  Age: 66 Year
  Sex: Female
  Weight: 67.19 kg

DRUGS (1)
  1. STELARA [Suspect]
     Active Substance: USTEKINUMAB
     Indication: PSORIATIC ARTHROPATHY
     Dosage: LAST DOSE ON 04-JUN-2019
     Route: 058

REACTIONS (3)
  - Psoriatic arthropathy [Unknown]
  - Product dose omission [Unknown]
  - Product complaint [Unknown]

NARRATIVE: CASE EVENT DATE: 20190604
